FAERS Safety Report 13199852 (Version 2)
Quarter: 2017Q1

REPORT INFORMATION
  Report Type: Report from Study
  Country: US (occurrence: US)
  Receive Date: 20170208
  Receipt Date: 20170227
  Transmission Date: 20170428
  Serious: Yes (Hospitalization, Other)
  Sender: FDA-Public Use
  Company Number: US-ACTELION-A-US2016-139484

PATIENT
  Age: 60 Year
  Sex: Female
  Weight: 82.86 kg

DRUGS (5)
  1. OXYGEN. [Concomitant]
     Active Substance: OXYGEN
  2. COUMADIN [Concomitant]
     Active Substance: WARFARIN SODIUM
  3. VELETRI [Suspect]
     Active Substance: EPOPROSTENOL
     Dosage: UNK
     Route: 042
     Dates: start: 20160205
  4. VELETRI [Suspect]
     Active Substance: EPOPROSTENOL
     Indication: PULMONARY ARTERIAL HYPERTENSION
     Dosage: 90 NG/KG, PER MIN
     Route: 042
     Dates: start: 20160205
  5. RIOCIGUAT [Concomitant]
     Active Substance: RIOCIGUAT

REACTIONS (33)
  - Pain [Unknown]
  - Fatigue [Unknown]
  - Rash generalised [Unknown]
  - Influenza like illness [Unknown]
  - Catheter site haemorrhage [Unknown]
  - Hypotension [Unknown]
  - Alopecia [Unknown]
  - Asthenia [Unknown]
  - Dizziness [Unknown]
  - Presyncope [Unknown]
  - Nausea [Unknown]
  - Activities of daily living impaired [Unknown]
  - Weight decreased [Unknown]
  - Pneumonia [Unknown]
  - Upper-airway cough syndrome [Unknown]
  - Pruritus [Unknown]
  - Dyspepsia [Unknown]
  - Neuropathy peripheral [Unknown]
  - Walking distance test abnormal [Unknown]
  - Palpitations [Unknown]
  - Haemoptysis [Unknown]
  - Flushing [Unknown]
  - Cyanosis [Unknown]
  - Swelling [Unknown]
  - Diarrhoea [Unknown]
  - Nervous system disorder [Unknown]
  - Burning sensation [Unknown]
  - Deafness [Unknown]
  - Chest discomfort [Unknown]
  - Chest pain [Unknown]
  - Gait disturbance [Unknown]
  - Somnolence [Unknown]
  - Generalised erythema [Unknown]
